FAERS Safety Report 5201181-2 (Version None)
Quarter: 2007Q1

REPORT INFORMATION
  Report Type: 
  Country: None (occurrence: None)
  Receive Date: 20070108
  Receipt Date: 20070102
  Transmission Date: 20070707
  Serious: Yes (Other)
  Sender: FDA-Public Use
  Company Number: 2007UW00154

PATIENT
  Sex: Female

DRUGS (1)
  1. CRESTOR [Suspect]
     Route: 048
     Dates: end: 20061228

REACTIONS (8)
  - ARTHRITIS [None]
  - ASTHENIA [None]
  - FEELING OF DESPAIR [None]
  - MUSCLE DISORDER [None]
  - MUSCULOSKELETAL PAIN [None]
  - MYALGIA [None]
  - PELVIC PAIN [None]
  - SCIATICA [None]
